FAERS Safety Report 9375631 (Version 2)
Quarter: 2013Q3

REPORT INFORMATION
  Report Type: Spontaneous
  Country: US (occurrence: US)
  Receive Date: 20130628
  Receipt Date: 20130716
  Transmission Date: 20140515
  Serious: Yes (Other)
  Sender: FDA-Public Use
  Company Number: US-AMGEN-USASP2013045075

PATIENT
  Age: 77 Year
  Sex: Female
  Weight: 62.13 kg

DRUGS (1)
  1. ENBREL [Suspect]
     Indication: PSORIASIS
     Dosage: UNK
     Route: 065

REACTIONS (6)
  - Ovarian cancer [Unknown]
  - Malignant peritoneal neoplasm [Unknown]
  - Pleural effusion [Unknown]
  - Ascites [Unknown]
  - Rash [Unknown]
  - Dementia [Unknown]
